FAERS Safety Report 6584685-X (Version None)
Quarter: 2010Q1

REPORT INFORMATION
  Report Type: 
  Country: None (occurrence: None)
  Receive Date: 20100217
  Receipt Date: 20100204
  Transmission Date: 20100710
  Serious: Yes (Other)
  Sender: FDA-Public Use
  Company Number: PHHY2009DE44078

PATIENT
  Sex: Male

DRUGS (9)
  1. ZOMETA [Suspect]
     Indication: METASTASES TO BONE
     Dosage: 4MG/5 ML
     Route: 042
     Dates: start: 20091007
  2. ZOMETA [Suspect]
     Dosage: UNK
     Dates: start: 20100101
  3. CASODEX [Concomitant]
  4. ATACAND HCT [Concomitant]
  5. ASS [Concomitant]
  6. SORTIS [Concomitant]
  7. MAGNESIUM [Concomitant]
     Dosage: 300 MG/DAY
  8. CALCIMAGON-D3 [Concomitant]
     Dosage: CALCIUM CARBONATE: 2500 MG/DAY, COLECALCIFEROL: 8 MG/DAY
  9. BINATONE [Concomitant]

REACTIONS (8)
  - CHILLS [None]
  - DIZZINESS [None]
  - FEELING HOT [None]
  - HEADACHE [None]
  - PARAESTHESIA [None]
  - POLYNEUROPATHY [None]
  - PYREXIA [None]
  - SLEEP DISORDER [None]
